FAERS Safety Report 5252580-4 (Version None)
Quarter: 2007Q1

REPORT INFORMATION
  Report Type: 
  Country: None (occurrence: None)
  Receive Date: 20070227
  Receipt Date: 20070227
  Transmission Date: 20070707
  Serious: Yes (Hospitalization)
  Sender: FDA-Public Use
  Company Number: None

PATIENT
  Age: 54 Year
  Sex: Male
  Weight: 106.5953 kg

DRUGS (1)
  1. PEGINTERFERON ALPHA 2A 180MCG/ML [Suspect]
     Indication: HEPATITIS C
     Dosage: 180MCG  -1ML-  ONCE WEEKLY  SQ
     Route: 058
     Dates: start: 20061013, end: 20061104

REACTIONS (2)
  - BLOOD PRESSURE DIASTOLIC INCREASED [None]
  - HEADACHE [None]
